FAERS Safety Report 24421077 (Version 2)
Quarter: 2024Q4

REPORT INFORMATION
  Report Type: Report from Study
  Country: US (occurrence: US)
  Receive Date: 20241010
  Receipt Date: 20241018
  Transmission Date: 20250115
  Serious: No
  Sender: ROCHE
  Company Number: US-ROCHE-3577422

PATIENT
  Age: 49 Year
  Sex: Female

DRUGS (39)
  1. CATHFLO ACTIVASE [Suspect]
     Active Substance: ALTEPLASE
     Indication: Product used for unknown indication
     Dosage: ONCE ROUTINE PRN CLOTS, DAYS 1 TO 2?IV PUSH
     Route: 042
     Dates: start: 20240418, end: 20240420
  2. CATHFLO ACTIVASE [Suspect]
     Active Substance: ALTEPLASE
     Dosage: ONCE ROUTINE PRN CLOTS, DAYS 1 TO 2?IV PUSH
     Route: 042
     Dates: start: 20240523, end: 20240524
  3. PERJETA [Suspect]
     Active Substance: PERTUZUMAB
     Indication: Breast cancer
     Dosage: ONCE ROUTINE, INFUSE OVER: 1 HOUR
     Route: 042
     Dates: start: 20240502, end: 20240502
  4. PERJETA [Suspect]
     Active Substance: PERTUZUMAB
     Dosage: ONCE ROUTINE, INFUSE OVER: 30 MINS
     Route: 042
     Dates: start: 20240523, end: 20240523
  5. SODIUM CHLORIDE [Concomitant]
     Active Substance: SODIUM CHLORIDE
     Route: 042
     Dates: start: 20240425
  6. SODIUM CHLORIDE [Concomitant]
     Active Substance: SODIUM CHLORIDE
     Dosage: 30 ML/HR
     Route: 042
     Dates: start: 20240425
  7. SODIUM CHLORIDE [Concomitant]
     Active Substance: SODIUM CHLORIDE
     Dosage: 10 ML/HR, TITRATION RANGE: 10-999 ML/HR, FOR 12 HR,
     Route: 042
     Dates: start: 20240418, end: 20240420
  8. SODIUM CHLORIDE [Concomitant]
     Active Substance: SODIUM CHLORIDE
     Dosage: 10 ML/HR, TITRATION RANGE: 10-999 ML/HR, FOR 12 HR,
     Route: 042
     Dates: start: 20240502, end: 20240503
  9. SODIUM CHLORIDE [Concomitant]
     Active Substance: SODIUM CHLORIDE
     Dosage: 10 ML/HR, TITRATION RANGE: 10-999 ML/HR, FOR 12 HR,
     Route: 042
     Dates: start: 20240523, end: 20240524
  10. TYLENOL [Concomitant]
     Active Substance: ACETAMINOPHEN
     Indication: Pain
     Route: 048
     Dates: start: 20240425
  11. CARBOPLATIN [Concomitant]
     Active Substance: CARBOPLATIN
     Dosage: THERAPY DATE: 02/MAY/2024, 23/MAY/2024?DOSE: 610 MG, 644 MG, ONCE ROUTINE, INFUSE OVER 30 MINS
     Route: 042
  12. CEFAZOLIN [Concomitant]
     Active Substance: CEFAZOLIN
     Indication: Prophylaxis
     Dosage: X1 STAT
     Route: 050
     Dates: start: 20240425, end: 20240425
  13. DECADRON [Concomitant]
     Active Substance: DEXAMETHASONE
     Dosage: THERAPY DATES: 02/MAY/2024, 23/MAY/2024?IV PUSH SOLN
  14. DEXAMETHASONE [Concomitant]
     Active Substance: DEXAMETHASONE
     Dosage: IV SOLN, X1
     Dates: start: 20240525
  15. DEXAMETHASONE [Concomitant]
     Active Substance: DEXAMETHASONE
     Dosage: 3 DAYS BEGINNING THE DAY BEFORE TREATMENT, MAINTENANCE
     Route: 048
  16. TAXOTERE [Concomitant]
     Active Substance: DOCETAXEL
     Dosage: INJ DOSES: 116MG, 113MG?THERAPY DATES: 02/MAY/2024, 23/MAY/2024
     Route: 042
  17. DOXYCYCLINE HYCLATE [Concomitant]
     Active Substance: DOXYCYCLINE HYCLATE
     Dosage: 7 DAYS
     Route: 048
     Dates: start: 20240530
  18. ESCITALOPRAM [Concomitant]
     Active Substance: ESCITALOPRAM OXALATE
     Dosage: FREQUENCY TEXT:QHS
     Route: 048
  19. PEPCID [Concomitant]
     Active Substance: FAMOTIDINE
     Dosage: START IT THE DAY OF THE TREATMENT
     Route: 048
  20. FENTANYL [Concomitant]
     Active Substance: FENTANYL
     Dosage: IV PUSH, INJ
     Dates: start: 20240425
  21. SUBLIMAZE [Concomitant]
     Active Substance: FENTANYL CITRATE
     Dosage: INJ, X1
     Route: 042
  22. EMEND (FOSAPREPITANT DIMEGLUMINE) [Concomitant]
     Active Substance: FOSAPREPITANT DIMEGLUMINE
     Dosage: ONCE ROUTINE, INFUSE OVER: 20 MIN?THERAPY DATES: 02/MAY/2024, 23/MAY/2024
     Route: 042
  23. LIDOCAINE\PRILOCAINE [Concomitant]
     Active Substance: LIDOCAINE\PRILOCAINE
     Dosage: 2.5%-2.5%
     Route: 061
  24. XYLOCAINE [Concomitant]
     Active Substance: LIDOCAINE HYDROCHLORIDE
     Dosage: INJ, X1?STOP DATE: 25/APR/2024
     Route: 042
  25. IMODIUM A-D [Concomitant]
     Active Substance: LOPERAMIDE HYDROCHLORIDE
     Indication: Diarrhoea
     Dosage: AS NEEDED
     Route: 048
  26. LORATADINE [Concomitant]
     Active Substance: LORATADINE
     Route: 048
  27. MUPIROCIN [Concomitant]
     Active Substance: MUPIROCIN
     Dosage: APPLY A THIN FILM
     Route: 061
  28. OLANZAPINE [Concomitant]
     Active Substance: OLANZAPINE
     Dosage: BEST TO TAKE AT BED TIME
     Route: 048
  29. OMEPRAZOLE [Concomitant]
     Active Substance: OMEPRAZOLE
     Route: 048
  30. ONDANSETRON [Concomitant]
     Active Substance: ONDANSETRON
     Dosage: INJ, X1
     Route: 042
  31. ZOFRAN [Concomitant]
     Active Substance: ONDANSETRON HYDROCHLORIDE
     Dosage: AS NEEDED FOR NAUSEA/VOMITING
     Route: 048
  32. ZOFRAN [Concomitant]
     Active Substance: ONDANSETRON HYDROCHLORIDE
     Route: 050
     Dates: start: 20240425
  33. ALOXI [Concomitant]
     Active Substance: PALONOSETRON HYDROCHLORIDE
     Dosage: INJ?THERAPY DATES: 02/MAY/2024, 23/MAY/2024
     Route: 050
  34. FYLNETRA [Concomitant]
     Active Substance: PEGFILGRASTIM-PBBK
     Dosage: THERAPY DATES: 03/MAY/2024, 24/MAY/2024
     Route: 058
  35. PHENERGAN [Concomitant]
     Active Substance: PROMETHAZINE HYDROCHLORIDE
     Dosage: PR,
  36. OGIVRI [Concomitant]
     Active Substance: TRASTUZUMAB-DKST
     Dosage: ONCE ROUTINE, INFUSE OVER 90 MINS
     Route: 042
     Dates: start: 20240502
  37. OGIVRI [Concomitant]
     Active Substance: TRASTUZUMAB-DKST
     Dosage: ONCE ROUTINE, INFUSE OVER 30 MINS
     Route: 042
     Dates: start: 20240523
  38. TRAZIMERA [Concomitant]
     Active Substance: TRASTUZUMAB-QYYP
     Dosage: ONCE ROUTINE, INFUSE OVER 90 MINS
     Route: 042
     Dates: start: 20240502
  39. TRAZIMERA [Concomitant]
     Active Substance: TRASTUZUMAB-QYYP
     Dosage: ONCE ROUTINE, INFUSE OVER 30 MINS
     Route: 042
     Dates: start: 20240523

REACTIONS (2)
  - Medication error [Unknown]
  - No adverse event [Unknown]
